FAERS Safety Report 19232210 (Version 1)
Quarter: 2021Q2

REPORT INFORMATION
  Report Type: Spontaneous
  Country: CA (occurrence: CA)
  Receive Date: 20210507
  Receipt Date: 20210507
  Transmission Date: 20210717
  Serious: Yes (Other)
  Sender: FDA-Public Use
  Company Number: CA-ACCORD-224504

PATIENT
  Age: 55 Year
  Sex: Female

DRUGS (5)
  1. LETROZOLE. [Concomitant]
     Active Substance: LETROZOLE
  2. TAMOXIFEN [Suspect]
     Active Substance: TAMOXIFEN
     Indication: PRODUCT USED FOR UNKNOWN INDICATION
     Route: 048
  3. FULVESTRANT. [Suspect]
     Active Substance: FULVESTRANT
     Indication: PRODUCT USED FOR UNKNOWN INDICATION
     Route: 030
  4. IBRANCE [Suspect]
     Active Substance: PALBOCICLIB
     Indication: PRODUCT USED FOR UNKNOWN INDICATION
     Route: 048
  5. CAPECITABINE. [Concomitant]
     Active Substance: CAPECITABINE

REACTIONS (2)
  - Bone pain [Unknown]
  - Malignant neoplasm progression [Unknown]
